FAERS Safety Report 22073889 (Version 2)
Quarter: 2023Q2

REPORT INFORMATION
  Report Type: Report from Study
  Country: US (occurrence: US)
  Receive Date: 20230308
  Receipt Date: 20230509
  Transmission Date: 20230721
  Serious: Yes (Other)
  Sender: FDA-Public Use
  Company Number: US-ABBVIE-4331148

PATIENT
  Age: 63 Year
  Sex: Female
  Weight: 102.96 kg

DRUGS (5)
  1. IMBRUVICA [Suspect]
     Active Substance: IBRUTINIB
     Indication: Leukaemia
     Route: 048
     Dates: start: 20210306, end: 20230226
  2. IMBRUVICA [Suspect]
     Active Substance: IBRUTINIB
     Indication: Leukaemia
     Dosage: FORM STRENGTH: 420 MG
     Route: 048
  3. DORZOLAMIDE [Concomitant]
     Active Substance: DORZOLAMIDE
     Indication: Ocular discomfort
  4. COPAXONE [Concomitant]
     Active Substance: GLATIRAMER ACETATE
     Indication: Multiple sclerosis
  5. BRIMONIDINE [Concomitant]
     Active Substance: BRIMONIDINE TARTRATE
     Indication: Eye drop instillation

REACTIONS (3)
  - Keratomileusis [Recovered/Resolved]
  - Joint injury [Recovered/Resolved]
  - Knee operation [Recovering/Resolving]

NARRATIVE: CASE EVENT DATE: 20221212
